FAERS Safety Report 10221754 (Version 1)
Quarter: 2014Q2

REPORT INFORMATION
  Report Type: Spontaneous
  Country: US (occurrence: None)
  Receive Date: 20140606
  Receipt Date: 20140606
  Transmission Date: 20141212
  Serious: Yes (Disabling, Other)
  Sender: FDA-Public Use
  Company Number: None

PATIENT
  Age: 41 Year
  Sex: Male
  Weight: 120.2 kg

DRUGS (4)
  1. NEXIUM (ESOMEPRAZOLE MAGNESIUM) [Suspect]
     Indication: GASTROOESOPHAGEAL REFLUX DISEASE
     Dosage: STARTED AT 40 MG NOW 20 MG?30QTY GET 2 BOTTLES?ONE TWICE DAILY?BY MOUTH
     Route: 048
     Dates: start: 200912
  2. NEXIUM [Concomitant]
  3. COMBIGAN [Concomitant]
  4. XALATAN [Concomitant]

REACTIONS (13)
  - Restless legs syndrome [None]
  - Insomnia [None]
  - Vision blurred [None]
  - Intraocular pressure increased [None]
  - Blindness transient [None]
  - Blindness unilateral [None]
  - Feeling hot [None]
  - Malaise [None]
  - Chest discomfort [None]
  - Eyelid disorder [None]
  - Paraesthesia [None]
  - Eye pain [None]
  - Nervous system disorder [None]
